FAERS Safety Report 10358501 (Version 1)
Quarter: 2014Q3

REPORT INFORMATION
  Report Type: Spontaneous
  Country: FR (occurrence: FR)
  Receive Date: 20140801
  Receipt Date: 20140801
  Transmission Date: 20150326
  Serious: Yes (Other)
  Sender: FDA-Public Use
  Company Number: FR-ASTRAZENECA-2014SE54330

PATIENT
  Age: 832 Month
  Sex: Female

DRUGS (6)
  1. CRESTOR [Suspect]
     Active Substance: ROSUVASTATIN CALCIUM
     Indication: DYSLIPIDAEMIA
     Route: 048
     Dates: end: 20140424
  2. JANUMET [Suspect]
     Active Substance: METFORMIN HYDROCHLORIDE\SITAGLIPTIN PHOSPHATE
     Indication: TYPE 2 DIABETES MELLITUS
     Route: 048
     Dates: end: 20140424
  3. KARDEGIC [Concomitant]
     Active Substance: ASPIRIN LYSINE
  4. COAPROVEL [Concomitant]
     Active Substance: HYDROCHLOROTHIAZIDE\IRBESARTAN
  5. SELECTOL [Concomitant]
     Active Substance: CELIPROLOL
  6. ZANIDIP [Concomitant]
     Active Substance: LERCANIDIPINE HYDROCHLORIDE

REACTIONS (2)
  - Hepatocellular injury [Recovered/Resolved]
  - Renal failure [Unknown]

NARRATIVE: CASE EVENT DATE: 201403
